FAERS Safety Report 6361819-3 (Version None)
Quarter: 2009Q3

REPORT INFORMATION
  Report Type: 
  Country: None (occurrence: None)
  Receive Date: 20090918
  Receipt Date: 20090909
  Transmission Date: 20100115
  Serious: Yes (Other)
  Sender: FDA-Public Use
  Company Number: JP-ASTRAZENECA-2009SE13385

PATIENT

DRUGS (4)
  1. BLOPRESS [Suspect]
     Indication: DRUG USE FOR UNKNOWN INDICATION
     Route: 048
     Dates: end: 20090204
  2. DEPAKENE [Suspect]
     Route: 048
  3. GRAMALIL [Concomitant]
     Route: 048
  4. SERMION [Concomitant]
     Route: 048

REACTIONS (2)
  - CHOLESTASIS [None]
  - HEPATIC NEOPLASM [None]
